FAERS Safety Report 11392200 (Version 1)
Quarter: 2015Q3

REPORT INFORMATION
  Report Type: Spontaneous
  Country: US (occurrence: None)
  Receive Date: 20150817
  Receipt Date: 20150817
  Transmission Date: 20151125
  Serious: Yes (Life-Threatening, Hospitalization)
  Sender: FDA-Public Use
  Company Number: None

PATIENT
  Age: 56 Year
  Sex: Male

DRUGS (1)
  1. PHENYTOIN. [Suspect]
     Active Substance: PHENYTOIN
     Indication: SEIZURE
     Route: 048
     Dates: start: 20150602, end: 20150622

REACTIONS (5)
  - Rash generalised [None]
  - Drug eruption [None]
  - Rash morbilliform [None]
  - Sepsis [None]
  - Aspartate aminotransferase increased [None]

NARRATIVE: CASE EVENT DATE: 20150622
